FAERS Safety Report 10716833 (Version 1)
Quarter: 2015Q1

REPORT INFORMATION
  Report Type: Spontaneous
  Country: CN (occurrence: CN)
  Receive Date: 20150116
  Receipt Date: 20150116
  Transmission Date: 20150721
  Serious: Yes (Hospitalization, Disabling)
  Sender: FDA-Public Use
  Company Number: CN-PFIZER INC-2015012156

PATIENT
  Age: 48 Year
  Sex: Female
  Weight: 60 kg

DRUGS (4)
  1. SOLU-MEDROL [Suspect]
     Active Substance: METHYLPREDNISOLONE SODIUM SUCCINATE
     Dosage: 120 MG, 1X/DAY
     Route: 041
     Dates: start: 20140630, end: 20140702
  2. MEDROL [Suspect]
     Active Substance: METHYLPREDNISOLONE
     Indication: MYELITIS
     Dosage: 30 MG, 1X/DAY
     Route: 048
     Dates: start: 20140705, end: 20140715
  3. SOLU-MEDROL [Suspect]
     Active Substance: METHYLPREDNISOLONE SODIUM SUCCINATE
     Dosage: 0.25 G, 1X/DAY
     Route: 041
     Dates: start: 20140627, end: 20140629
  4. SOLU-MEDROL [Suspect]
     Active Substance: METHYLPREDNISOLONE SODIUM SUCCINATE
     Indication: MYELITIS
     Dosage: 0.5 G, 1X/DAY
     Route: 041
     Dates: start: 20140624, end: 20140626

REACTIONS (1)
  - Diabetes mellitus [Recovering/Resolving]

NARRATIVE: CASE EVENT DATE: 20140712
